FAERS Safety Report 22309537 (Version 3)
Quarter: 2023Q2

REPORT INFORMATION
  Report Type: Spontaneous
  Country: CH (occurrence: CH)
  Receive Date: 20230511
  Receipt Date: 20230614
  Transmission Date: 20230722
  Serious: Yes (Death)
  Sender: FDA-Public Use
  Company Number: CH-BAYER-2023A061937

PATIENT
  Age: 76 Year
  Sex: Male

DRUGS (1)
  1. STIVARGA [Suspect]
     Active Substance: REGORAFENIB
     Indication: Hepatocellular carcinoma
     Dosage: DOSING: 2-0-0
     Dates: start: 20220828, end: 20221118

REACTIONS (3)
  - Hepatocellular carcinoma [Fatal]
  - Metastases to diaphragm [Fatal]
  - Off label use [None]

NARRATIVE: CASE EVENT DATE: 20220828
